FAERS Safety Report 23395394 (Version 1)
Quarter: 2024Q1

REPORT INFORMATION
  Report Type: Spontaneous
  Country: US (occurrence: US)
  Receive Date: 20240112
  Receipt Date: 20240112
  Transmission Date: 20240410
  Serious: No
  Sender: FDA-Public Use
  Company Number: US-AstraZeneca-CH-00541376A

PATIENT
  Sex: Female

DRUGS (2)
  1. SOLIRIS [Suspect]
     Active Substance: ECULIZUMAB
     Indication: Neuromyelitis optica spectrum disorder
     Dosage: UNK
     Route: 065
  2. CEFDINIR [Suspect]
     Active Substance: CEFDINIR
     Indication: Urinary tract infection
     Dosage: UNK
     Route: 065

REACTIONS (4)
  - Urinary tract infection [Unknown]
  - Dehydration [Unknown]
  - Lip swelling [Unknown]
  - Swollen tongue [Unknown]
